FAERS Safety Report 5849716-0 (Version None)
Quarter: 2008Q3

REPORT INFORMATION
  Report Type: 
  Country: None (occurrence: None)
  Receive Date: 20080818
  Receipt Date: 20080818
  Transmission Date: 20090109
  Serious: Yes (Hospitalization)
  Sender: FDA-Public Use
  Company Number: None

PATIENT
  Age: 17 Year
  Sex: Female

DRUGS (1)
  1. YAZ [Suspect]
     Dosage: 1 TAB DAILY ORAL(PO)
     Route: 048

REACTIONS (2)
  - FIBRIN D DIMER INCREASED [None]
  - UNEVALUABLE EVENT [None]
